FAERS Safety Report 8329319-9 (Version None)
Quarter: 2012Q2

REPORT INFORMATION
  Report Type: 
  Country: None (occurrence: None)
  Receive Date: 20120502
  Receipt Date: 20111028
  Transmission Date: 20120825
  Serious: No
  Sender: FDA-Public Use
  Company Number: US-ASTRAZENECA-2011SE65653

PATIENT

DRUGS (7)
  1. CALCIUM AND VITAMIN D [Concomitant]
  2. FASLODEX [Suspect]
     Indication: METASTATIC NEOPLASM
     Route: 030
     Dates: start: 20101201
  3. PLUTONIC ACID [Concomitant]
  4. IBUPROFEN [Concomitant]
  5. DIAZEPAM [Concomitant]
  6. OXYCODONE HCL [Concomitant]
  7. FASLODEX [Suspect]
     Route: 030
     Dates: start: 20110701

REACTIONS (4)
  - DEPRESSION [None]
  - MUSCULOSKELETAL STIFFNESS [None]
  - ARTHRALGIA [None]
  - PAIN IN EXTREMITY [None]
